FAERS Safety Report 13157432 (Version 3)
Quarter: 2017Q1

REPORT INFORMATION
  Report Type: Spontaneous
  Country: US (occurrence: US)
  Receive Date: 20170127
  Receipt Date: 20170210
  Transmission Date: 20170428
  Serious: Yes (Death, Other)
  Sender: FDA-Public Use
  Company Number: US-UNITED THERAPEUTICS-UNT-2017-000861

PATIENT
  Sex: Female

DRUGS (4)
  1. REMODULIN [Suspect]
     Active Substance: TREPROSTINIL
     Dosage: 0.065 ?G/KG, CONTINUING
     Route: 041
     Dates: start: 20161017
  2. REMODULIN [Suspect]
     Active Substance: TREPROSTINIL
     Indication: PULMONARY ARTERIAL HYPERTENSION
     Dosage: 0.065 ?G/KG, CONTINUING
     Route: 041
     Dates: start: 20120503
  3. REMODULIN [Suspect]
     Active Substance: TREPROSTINIL
     Dosage: 0.065 ?G/KG, Q48H
     Route: 041
     Dates: start: 20120702, end: 20170203
  4. REMODULIN [Suspect]
     Active Substance: TREPROSTINIL
     Dosage: 0.001-0.150 ?G/KG, CONTINUING
     Route: 041
     Dates: start: 20100524, end: 20170203

REACTIONS (4)
  - Lethargy [Unknown]
  - General physical health deterioration [Fatal]
  - Confusional state [Unknown]
  - Tearfulness [Unknown]

NARRATIVE: CASE EVENT DATE: 20170118
